FAERS Safety Report 9720898 (Version 1)
Quarter: 2013Q4

REPORT INFORMATION
  Report Type: Report from Study
  Country: CA (occurrence: CA)
  Receive Date: 20131129
  Receipt Date: 20131129
  Transmission Date: 20140711
  Serious: Yes (Hospitalization)
  Sender: FDA-Public Use
  Company Number: CA-JNJFOC-20131115279

PATIENT
  Age: 23 Year
  Sex: Male
  Weight: 61 kg

DRUGS (6)
  1. REMICADE [Suspect]
     Indication: CROHN^S DISEASE
     Route: 042
     Dates: end: 20130604
  2. REMICADE [Suspect]
     Indication: CROHN^S DISEASE
     Dosage: RE-INTRODUCTION
     Route: 042
     Dates: start: 20131121
  3. SOLUCORTEF [Concomitant]
     Indication: PREMEDICATION
     Route: 042
  4. METHOTREXATE [Concomitant]
     Route: 048
  5. BENADRYL [Concomitant]
     Indication: PREMEDICATION
     Route: 048
  6. TYLENOL [Concomitant]
     Indication: PREMEDICATION
     Route: 048

REACTIONS (5)
  - Malaise [Unknown]
  - Infusion related reaction [Recovered/Resolved]
  - Pruritus [Recovered/Resolved]
  - Flushing [Recovered/Resolved]
  - Feeling hot [Recovered/Resolved]
